FAERS Safety Report 4561531-7 (Version None)
Quarter: 2005Q1

REPORT INFORMATION
  Report Type: 
  Country: None (occurrence: None)
  Receive Date: 20050121
  Receipt Date: 20040909
  Transmission Date: 20050727
  Serious: Yes (Hospitalization)
  Sender: FDA-Public Use
  Company Number: 2004234638US

PATIENT
  Age: 88 Year
  Sex: Female

DRUGS (8)
  1. DETROL [Suspect]
     Indication: INCONTINENCE
     Dosage: 1 MG, BID, ORAL
     Route: 048
  2. RIFAMPICIN [Suspect]
     Dosage: ORAL
     Route: 048
     Dates: start: 20040904
  3. REQUIP [Concomitant]
  4. SINEMET [Concomitant]
  5. ARICEPT [Concomitant]
  6. CELEXA [Concomitant]
  7. TIMOPTIC [Concomitant]
  8. TIMOLOL MALEATE [Concomitant]

REACTIONS (7)
  - BUNION OPERATION [None]
  - DRUG EFFECT DECREASED [None]
  - DRUG INTERACTION [None]
  - DYSARTHRIA [None]
  - MENTAL STATUS CHANGES [None]
  - OSTEOMYELITIS [None]
  - STAPHYLOCOCCAL INFECTION [None]
